FAERS Safety Report 9266092 (Version 2)
Quarter: 2013Q2

REPORT INFORMATION
  Report Type: Spontaneous
  Country: US (occurrence: US)
  Receive Date: 20130501
  Receipt Date: 20130509
  Transmission Date: 20140414
  Serious: Yes (Disabling)
  Sender: FDA-Public Use
  Company Number: US-MERCK-1304USA009413

PATIENT
  Age: 47 Year
  Sex: Male

DRUGS (8)
  1. SINEMET [Suspect]
     Indication: PARKINSON^S DISEASE
     Dosage: THE LEVODOPA EQUIVALENT DOSE WAS 3140 DAILY
     Route: 048
  2. SINEMET [Suspect]
     Dosage: THE LEVODOPA EQUIVALENT DOSE WAS 1048 DAILY
     Route: 048
  3. AMANTADINE HYDROCHLORIDE [Concomitant]
     Indication: PARKINSON^S DISEASE
  4. ENTACAPONE [Concomitant]
     Indication: PARKINSON^S DISEASE
  5. SELEGILINE [Concomitant]
     Indication: PARKINSON^S DISEASE
  6. BACLOFEN [Concomitant]
     Indication: PARKINSON^S DISEASE
  7. ESCITALOPRAM [Concomitant]
     Indication: PARKINSON^S DISEASE
  8. CALCIUM CARBONATE [Concomitant]
     Indication: PARKINSON^S DISEASE

REACTIONS (2)
  - Disability [Recovered/Resolved]
  - Drug effect decreased [Unknown]
